FAERS Safety Report 12231854 (Version 3)
Quarter: 2016Q2

REPORT INFORMATION
  Report Type: Spontaneous
  Country: JP (occurrence: JP)
  Receive Date: 20160401
  Receipt Date: 20160609
  Transmission Date: 20160815
  Serious: No
  Sender: FDA-Public Use
  Company Number: PHJP2016JP007612

PATIENT
  Age: 30 Year
  Sex: Female

DRUGS (5)
  1. LAMOTRIGINE. [Suspect]
     Active Substance: LAMOTRIGINE
     Indication: PAROXYSMAL CHOREOATHETOSIS
     Dosage: UNK
     Route: 065
  2. CARBAMAZEPINE. [Suspect]
     Active Substance: CARBAMAZEPINE
     Indication: PAROXYSMAL CHOREOATHETOSIS
     Dosage: 100 MG, UNK
     Route: 048
  3. CARBAMAZEPINE. [Suspect]
     Active Substance: CARBAMAZEPINE
     Dosage: 150 MG, QD
     Route: 048
  4. CARBAMAZEPINE. [Suspect]
     Active Substance: CARBAMAZEPINE
     Dosage: 75 MG, QD
     Route: 048
     Dates: end: 20120830
  5. TOPIRAMATE. [Suspect]
     Active Substance: TOPIRAMATE
     Indication: PAROXYSMAL CHOREOATHETOSIS
     Dosage: UNK
     Route: 065

REACTIONS (3)
  - Somnolence [Recovered/Resolved]
  - Nausea [Unknown]
  - Product use issue [Unknown]
